FAERS Safety Report 7799574-2 (Version None)
Quarter: 2011Q4

REPORT INFORMATION
  Report Type: 
  Country: None (occurrence: None)
  Receive Date: 20111004
  Receipt Date: 20110919
  Transmission Date: 20120403
  Serious: Yes (Hospitalization, Other)
  Sender: FDA-Public Use
  Company Number: 2011P1008420

PATIENT
  Age: 51 Year
  Sex: Female
  Weight: 44.4525 kg

DRUGS (16)
  1. CALCIUM CARBONATE [Concomitant]
  2. TRILEPTAL [Suspect]
     Indication: BIPOLAR DISORDER
     Dosage: 150 MG;BID
  3. FENTANYL [Suspect]
     Indication: PAIN
     Dosage: 1 PATCH;Q72H;TDER
     Route: 062
     Dates: start: 20090101
  4. FOLIC ACID [Concomitant]
  5. ADDERALL 5 [Concomitant]
  6. CYMBALTA [Concomitant]
  7. DILANTIN [Concomitant]
  8. WOMEN'S 50+ MULTIVITAMIN [Concomitant]
  9. NEXIUM [Concomitant]
  10. CLONAZEPAM [Concomitant]
  11. PROMETHAZINE [Concomitant]
  12. UNKNOWN MUSCLE RELAXANT [Concomitant]
  13. LORTAB [Concomitant]
  14. ROPINIROLE [Concomitant]
  15. CYCLOBENZAPRINE [Concomitant]
  16. PROVIGIL [Concomitant]

REACTIONS (12)
  - URINARY TRACT INFECTION [None]
  - NECK INJURY [None]
  - EXCORIATION [None]
  - NECK PAIN [None]
  - HEADACHE [None]
  - DRUG INEFFECTIVE [None]
  - LACERATION [None]
  - DERMAL CYST [None]
  - INTERVERTEBRAL DISC PROTRUSION [None]
  - BARTHOLIN'S CYST [None]
  - KIDNEY INFECTION [None]
  - GRAND MAL CONVULSION [None]
